FAERS Safety Report 18501466 (Version 9)
Quarter: 2022Q1

REPORT INFORMATION
  Report Type: Report from Study
  Country: GB (occurrence: None)
  Receive Date: 20201113
  Receipt Date: 20220217
  Transmission Date: 20220423
  Serious: Yes (Hospitalization)
  Sender: FDA-Public Use
  Company Number: GB-ROCHE-2692995

PATIENT
  Age: 67 Year
  Sex: Female
  Weight: 77 kg

DRUGS (17)
  1. IPATASERTIB [Suspect]
     Active Substance: IPATASERTIB
     Indication: HER2 negative breast cancer
     Dosage: ONCE A DAY ON DAYS 1-21 OF EACH 28-DAY CYCLE UNTIL DISEASE PROGRESSION, INTOLERABLE TOXICITY, ELECTI
     Route: 048
     Dates: start: 20191231
  2. ATEZOLIZUMAB [Suspect]
     Active Substance: ATEZOLIZUMAB
     Indication: HER2 negative breast cancer
     Dosage: ON 21/SEP/2020 AT 13:55, SHE RECEIVED THE MOST RECENT DOSE OF ATEZOLIZUMAB (840 MG) PRIOR TO SERIOUS
     Route: 041
     Dates: start: 20191231
  3. PACLITAXEL [Suspect]
     Active Substance: PACLITAXEL
     Indication: HER2 negative breast cancer
     Dosage: ON DAYS 1, 8, AND 15 OF EACH 28-DAY CYCLE UNTIL DISEASE PROGRESSION, INTOLERABLE TOXICITY, ELECTIVE
     Route: 042
     Dates: start: 20191231
  4. LOPERAMIDE [Suspect]
     Active Substance: LOPERAMIDE
     Indication: HER2 negative breast cancer
     Dosage: ON 04/JAN/2020, IT WAS HER MOST RECENT DOSE PRIOR TO SERIOUS ADVERSE EVENT ONSET.?ON AN UNSPECIFIED
     Route: 048
     Dates: start: 20200104
  5. CANDESARTAN [Concomitant]
     Active Substance: CANDESARTAN
     Indication: Hypertension
     Route: 048
     Dates: start: 20160906
  6. LEVOTHYROXINE [Concomitant]
     Active Substance: LEVOTHYROXINE
     Indication: Hypothyroidism
     Route: 048
     Dates: start: 20160906, end: 20210404
  7. LEVOTHYROXINE [Concomitant]
     Active Substance: LEVOTHYROXINE
     Route: 048
     Dates: start: 202010, end: 20210407
  8. ATORVASTATIN [Concomitant]
     Active Substance: ATORVASTATIN
     Route: 048
     Dates: start: 20160906
  9. ESTRADIOL VALERATE\MEDROXYPROGESTERONE ACETATE [Concomitant]
     Active Substance: ESTRADIOL VALERATE\MEDROXYPROGESTERONE ACETATE
     Indication: Menopause
     Route: 048
     Dates: start: 20170911
  10. OMEPRAZOLE [Concomitant]
     Active Substance: OMEPRAZOLE
     Indication: Dyspepsia
     Route: 048
     Dates: start: 20200114
  11. ONDANSETRON [Concomitant]
     Active Substance: ONDANSETRON
     Indication: Nausea
     Route: 048
     Dates: start: 20200317
  12. DENOSUMAB [Concomitant]
     Active Substance: DENOSUMAB
     Indication: Metastases to bone
     Route: 058
     Dates: start: 20200310
  13. CYCLIZINE [Concomitant]
     Active Substance: CYCLIZINE
     Indication: Nausea
     Route: 042
     Dates: start: 20200113, end: 20201027
  14. ACETAMINOPHEN [Concomitant]
     Active Substance: ACETAMINOPHEN
     Indication: Arthralgia
     Route: 048
     Dates: start: 20191205
  15. IBUPROFEN [Concomitant]
     Active Substance: IBUPROFEN
     Indication: Migraine
  16. CALCEOS [Concomitant]
     Active Substance: CALCIUM CARBONATE\CHOLECALCIFEROL
     Route: 048
     Dates: start: 20200302
  17. AMITRIPTYLINE [Concomitant]
     Active Substance: AMITRIPTYLINE
     Indication: Migraine
     Route: 048
     Dates: start: 20200124

REACTIONS (1)
  - Acute kidney injury [Recovered/Resolved]

NARRATIVE: CASE EVENT DATE: 20201005
